FAERS Safety Report 11747516 (Version 3)
Quarter: 2015Q4

REPORT INFORMATION
  Report Type: Spontaneous
  Country: GB (occurrence: GB)
  Receive Date: 20151117
  Receipt Date: 20151130
  Transmission Date: 20160304
  Serious: Yes (Other)
  Sender: FDA-Public Use
  Company Number: GB-SA-2015SA180095

PATIENT
  Sex: Male

DRUGS (4)
  1. LANTUS SOLOSTAR [Suspect]
     Active Substance: INSULIN GLARGINE
     Route: 065
     Dates: start: 2005
  2. SOLOSTAR [Concomitant]
     Active Substance: DEVICE
     Dates: start: 2005
  3. LANTUS SOLOSTAR [Suspect]
     Active Substance: INSULIN GLARGINE
     Route: 065
     Dates: start: 2013
  4. SOLOSTAR [Concomitant]
     Active Substance: DEVICE
     Dates: start: 2013

REACTIONS (3)
  - Therapeutic response decreased [Unknown]
  - Blood glucose increased [Unknown]
  - Nephrolithiasis [Unknown]

NARRATIVE: CASE EVENT DATE: 201510
